FAERS Safety Report 4789108-9 (Version None)
Quarter: 2005Q4

REPORT INFORMATION
  Report Type: 
  Country: None (occurrence: None)
  Receive Date: 20051005
  Receipt Date: 20041230
  Transmission Date: 20060501
  Serious: Yes (Hospitalization, Other)
  Sender: FDA-Public Use
  Company Number: DE-MERCK-0501DEU00040

PATIENT
  Age: 64 Year
  Sex: Female
  Weight: 113 kg

DRUGS (9)
  1. FUROSEMIDE [Concomitant]
     Route: 048
  2. ZOCOR [Concomitant]
     Route: 048
  3. VIOXX [Suspect]
     Indication: ARTHRALGIA
     Route: 048
     Dates: start: 20010119, end: 20040101
  4. PHENPROCOUMON [Concomitant]
     Route: 065
     Dates: start: 20010901, end: 20031001
  5. REPAGLINIDE [Concomitant]
     Route: 048
  6. INSULIN GLARGINE [Concomitant]
     Route: 051
  7. AMLODIPINE BESYLATE [Concomitant]
     Route: 048
  8. FOSINOPRIL SODIUM [Concomitant]
     Route: 048
  9. ALLOPURINOL [Concomitant]
     Route: 048

REACTIONS (11)
  - ARTERIOSCLEROSIS [None]
  - CARDIAC DISORDER [None]
  - CARDIAC FAILURE CONGESTIVE [None]
  - CEREBROVASCULAR ACCIDENT [None]
  - CHOLANGITIS ACUTE [None]
  - CHOLELITHIASIS [None]
  - DEEP VEIN THROMBOSIS [None]
  - GASTRIC DISORDER [None]
  - OSTEOPOROSIS [None]
  - PULMONARY EMBOLISM [None]
  - REVERSIBLE ISCHAEMIC NEUROLOGICAL DEFICIT [None]
